FAERS Safety Report 19622743 (Version 2)
Quarter: 2022Q3

REPORT INFORMATION
  Report Type: Spontaneous
  Country: US (occurrence: US)
  Receive Date: 20210728
  Receipt Date: 20220730
  Transmission Date: 20221027
  Serious: No
  Sender: FDA-Public Use
  Company Number: US-ACCORD-224470

PATIENT
  Age: 53 Year
  Sex: Female
  Weight: 52.62 kg

DRUGS (5)
  1. AMITRIPTYLINE [Suspect]
     Active Substance: AMITRIPTYLINE
     Indication: Cystitis interstitial
     Dosage: ONCE A DAY
     Route: 048
     Dates: start: 20210419
  2. VALIUM [Concomitant]
     Active Substance: DIAZEPAM
     Indication: Anxiety
     Route: 048
  3. ESTRADIOL [Concomitant]
     Active Substance: ESTRADIOL
     Indication: Hormone replacement therapy
     Dosage: ONCE A DAY
     Route: 048
  4. PROGESTERONE [Concomitant]
     Active Substance: PROGESTERONE
     Indication: Hormone therapy
     Dosage: ONCE DAY
     Route: 048
  5. NALTREXONE [Concomitant]
     Active Substance: NALTREXONE
     Dosage: ONCE A DAY
     Route: 048

REACTIONS (2)
  - Paraesthesia [Recovered/Resolved]
  - Hypoaesthesia [Recovered/Resolved]

NARRATIVE: CASE EVENT DATE: 20210426
